FAERS Safety Report 26055085 (Version 1)
Quarter: 2025Q4

REPORT INFORMATION
  Report Type: Spontaneous
  Country: EU (occurrence: EU)
  Receive Date: 20251117
  Receipt Date: 20251117
  Transmission Date: 20260118
  Serious: Yes (Other)
  Sender: MYLAN
  Company Number: None

PATIENT
  Age: 62 Year
  Sex: Male

DRUGS (20)
  1. LYRICA [Suspect]
     Active Substance: PREGABALIN
     Indication: Product used for unknown indication
     Dosage: 7 DOSAGE FORM (7 TABLETS)
     Dates: start: 20250620, end: 20250620
  2. LYRICA [Suspect]
     Active Substance: PREGABALIN
     Dosage: 7 DOSAGE FORM (7 TABLETS)
     Route: 048
     Dates: start: 20250620, end: 20250620
  3. LYRICA [Suspect]
     Active Substance: PREGABALIN
     Dosage: 7 DOSAGE FORM (7 TABLETS)
     Route: 048
     Dates: start: 20250620, end: 20250620
  4. LYRICA [Suspect]
     Active Substance: PREGABALIN
     Dosage: 7 DOSAGE FORM (7 TABLETS)
     Dates: start: 20250620, end: 20250620
  5. MIDOMAFETAMINE [Suspect]
     Active Substance: MIDOMAFETAMINE
     Indication: Product used for unknown indication
     Dosage: UNK
  6. MIDOMAFETAMINE [Suspect]
     Active Substance: MIDOMAFETAMINE
     Dosage: UNK
     Route: 065
  7. MIDOMAFETAMINE [Suspect]
     Active Substance: MIDOMAFETAMINE
     Dosage: UNK
     Route: 065
  8. MIDOMAFETAMINE [Suspect]
     Active Substance: MIDOMAFETAMINE
     Dosage: UNK
  9. SUBUTEX [Suspect]
     Active Substance: BUPRENORPHINE HYDROCHLORIDE
     Indication: Product used for unknown indication
     Dosage: UNK
  10. SUBUTEX [Suspect]
     Active Substance: BUPRENORPHINE HYDROCHLORIDE
     Dosage: UNK
     Route: 065
  11. SUBUTEX [Suspect]
     Active Substance: BUPRENORPHINE HYDROCHLORIDE
     Dosage: UNK
     Route: 065
  12. SUBUTEX [Suspect]
     Active Substance: BUPRENORPHINE HYDROCHLORIDE
     Dosage: UNK
  13. COCAINE [Suspect]
     Active Substance: COCAINE
     Indication: Product used for unknown indication
     Dosage: UNK
  14. COCAINE [Suspect]
     Active Substance: COCAINE
     Dosage: UNK
     Route: 065
  15. COCAINE [Suspect]
     Active Substance: COCAINE
     Dosage: UNK
     Route: 065
  16. COCAINE [Suspect]
     Active Substance: COCAINE
     Dosage: UNK
  17. MORPHINE [Suspect]
     Active Substance: MORPHINE
     Indication: Product used for unknown indication
     Dosage: UNK
  18. MORPHINE [Suspect]
     Active Substance: MORPHINE
     Dosage: UNK
     Route: 065
  19. MORPHINE [Suspect]
     Active Substance: MORPHINE
     Dosage: UNK
     Route: 065
  20. MORPHINE [Suspect]
     Active Substance: MORPHINE
     Dosage: UNK

REACTIONS (8)
  - Substance use disorder [Unknown]
  - Drug use disorder [Unknown]
  - Depressed level of consciousness [Unknown]
  - Somnolence [Unknown]
  - Miosis [Unknown]
  - Aggression [Unknown]
  - Tremor [Recovered/Resolved]
  - Disorganised speech [Recovered/Resolved]

NARRATIVE: CASE EVENT DATE: 20250620
